FAERS Safety Report 10060740 (Version 2)
Quarter: 2014Q2

REPORT INFORMATION
  Report Type: Spontaneous
  Country: FI (occurrence: FI)
  Receive Date: 20140404
  Receipt Date: 20140529
  Transmission Date: 20141212
  Serious: Yes (Hospitalization)
  Sender: FDA-Public Use
  Company Number: FI-ELI_LILLY_AND_COMPANY-FI201403010421

PATIENT
  Age: 55 Year
  Sex: Male

DRUGS (12)
  1. CYMBALTA [Suspect]
     Indication: SENILE ANKYLOSING VERTEBRAL HYPEROSTOSIS
     Dosage: 30 MG, OTHER
     Route: 065
     Dates: start: 20091019
  2. CYMBALTA [Suspect]
     Indication: DEPRESSION
  3. CYMBALTA [Suspect]
     Indication: PAIN
  4. EXFORGE [Concomitant]
     Indication: BLOOD PRESSURE
     Dosage: UNK, EACH MORNING
     Route: 065
  5. LIPANTHYL [Concomitant]
     Indication: BLOOD CHOLESTEROL
     Dosage: UNK, QD
     Route: 065
  6. SELOKEN                            /00376902/ [Concomitant]
     Indication: BLOOD PRESSURE
     Dosage: UNK, QD
     Route: 065
  7. ROSUVASTATIN [Concomitant]
     Indication: BLOOD CHOLESTEROL
     Dosage: 20 MG, QD
  8. SOMAC [Concomitant]
     Indication: ANTACID THERAPY
     Dosage: 40 MG, QD
     Route: 065
  9. FLIXONASE [Concomitant]
     Dosage: UNK, QD
     Route: 045
  10. HEINIX [Concomitant]
     Indication: HYPERSENSITIVITY
     Dosage: 10 MG, QD
     Route: 065
  11. BURANA [Concomitant]
     Indication: PYREXIA
     Dosage: UNK, PRN
     Route: 065
  12. BURANA [Concomitant]
     Indication: PAIN

REACTIONS (2)
  - Cerebral infarction [Recovered/Resolved]
  - Dizziness [Unknown]
